FAERS Safety Report 24732110 (Version 1)
Quarter: 2024Q4

REPORT INFORMATION
  Report Type: Spontaneous
  Country: US (occurrence: US)
  Receive Date: 20241213
  Receipt Date: 20241213
  Transmission Date: 20250114
  Serious: Yes (Death, Other)
  Sender: ADMA BIOLOGICS
  Company Number: US-ADMA BIOLOGICS INC.-US-2024ADM000186

PATIENT
  Age: 62 Year
  Sex: Male

DRUGS (1)
  1. HUMAN IMMUNOGLOBULIN G [Suspect]
     Active Substance: HUMAN IMMUNOGLOBULIN G
     Indication: Lymphopenia
     Dosage: UNK, MONTHLY
     Route: 042

REACTIONS (6)
  - Death [Fatal]
  - Plasmablastic lymphoma [Unknown]
  - Sepsis [Unknown]
  - Pancytopenia [Unknown]
  - Neutropenia [Unknown]
  - Off label use [Unknown]
